FAERS Safety Report 10055703 (Version 1)
Quarter: 2014Q2

REPORT INFORMATION
  Report Type: Spontaneous
  Country: PT (occurrence: PT)
  Receive Date: 20140403
  Receipt Date: 20140403
  Transmission Date: 20141212
  Serious: Yes (Death)
  Sender: FDA-Public Use
  Company Number: PT-ROCHE-1372309

PATIENT
  Age: 56 Year
  Sex: Male
  Weight: 68 kg

DRUGS (5)
  1. PEGASYS [Suspect]
     Indication: CHRONIC HEPATITIS C
     Dosage: SOLUTION FOR INJECTION IN PRE-FILLED PEN.MOST RECENT DOSE:27/SEP/2013
     Route: 058
     Dates: start: 20121102
  2. RIBAVIRINA [Concomitant]
     Indication: CHRONIC HEPATITIS C
     Route: 048
     Dates: start: 20121102, end: 20131004
  3. TELAPREVIR [Concomitant]
     Indication: CHRONIC HEPATITIS C
     Route: 048
     Dates: start: 20121030, end: 20130125
  4. JANUMET [Concomitant]
     Indication: DIABETES MELLITUS
     Route: 048
  5. OMNIC [Concomitant]
     Indication: BENIGN PROSTATIC HYPERPLASIA
     Route: 048

REACTIONS (3)
  - Death [Fatal]
  - Sepsis [Fatal]
  - Septic shock [Fatal]
